FAERS Safety Report 6088102-8 (Version None)
Quarter: 2009Q1

REPORT INFORMATION
  Report Type: 
  Country: None (occurrence: None)
  Receive Date: 20090218
  Receipt Date: 20090202
  Transmission Date: 20090719
  Serious: Yes (Other)
  Sender: FDA-Public Use
  Company Number: 000368

PATIENT
  Age: 52 Year
  Sex: Female

DRUGS (6)
  1. OMEPRAZOLE [Suspect]
  2. NOXAFIL (NOXAFIL) (NOT SPECIFIED) [Suspect]
     Dosage: (400 MG BID)
  3. PREDNISOLONE [Concomitant]
  4. METHOTREXATE [Concomitant]
  5. AMPHOTERICIN B [Concomitant]
  6. ITRACONAZOLE [Concomitant]

REACTIONS (2)
  - COCCIDIOIDOMYCOSIS [None]
  - CULTURE POSITIVE [None]
